FAERS Safety Report 24166202 (Version 2)
Quarter: 2024Q3

REPORT INFORMATION
  Report Type: Spontaneous
  Country: BG (occurrence: BG)
  Receive Date: 20240802
  Receipt Date: 20240826
  Transmission Date: 20241016
  Serious: Yes (Hospitalization, Other)
  Sender: CELLTRION
  Company Number: BG-CELLTRION INC.-2024BG018433

PATIENT

DRUGS (17)
  1. HERCEPTIN [Suspect]
     Active Substance: TRASTUZUMAB
     Indication: Breast cancer
     Dosage: THE PATIENT HAS COMPLETED FOUR CYCLES OF THE PRESCRIBED ANTI-TUMOR THERAPY
  2. HERCEPTIN [Suspect]
     Active Substance: TRASTUZUMAB
     Dosage: THE PATIENT HAS COMPLETED FOUR CYCLES OF THE PRESCRIBED ANTI-TUMOR THERAPY
  3. HERCEPTIN [Suspect]
     Active Substance: TRASTUZUMAB
     Dosage: THE PATIENT HAS COMPLETED FOUR CYCLES OF THE PRESCRIBED ANTI-TUMOR THERAPY
  4. HERCEPTIN [Suspect]
     Active Substance: TRASTUZUMAB
     Dosage: THE PATIENT HAS COMPLETED FOUR CYCLES OF THE PRESCRIBED ANTI-TUMOR THERAPY
  5. TRASTUZUMAB [Suspect]
     Active Substance: TRASTUZUMAB
     Indication: Breast cancer
     Dosage: THE PATIENT HAS COMPLETED FOUR CYCLES OF THE PRESCRIBED ANTI-TUMOR THERAPY
  6. TRASTUZUMAB [Suspect]
     Active Substance: TRASTUZUMAB
     Dosage: THE PATIENT HAS COMPLETED FOUR CYCLES OF THE PRESCRIBED ANTI-TUMOR THERAPY
  7. TRASTUZUMAB [Suspect]
     Active Substance: TRASTUZUMAB
     Dosage: THE PATIENT HAS COMPLETED FOUR CYCLES OF THE PRESCRIBED ANTI-TUMOR THERAPY
  8. TRASTUZUMAB [Suspect]
     Active Substance: TRASTUZUMAB
     Dosage: THE PATIENT HAS COMPLETED FOUR CYCLES OF THE PRESCRIBED ANTI-TUMOR THERAPY
  9. PERTUZUMAB [Suspect]
     Active Substance: PERTUZUMAB
     Indication: Breast cancer
     Dosage: THE PATIENT HAS COMPLETED FOUR CYCLES OF THE PRESCRIBED ANTI-TUMOR THERAPY
  10. PERTUZUMAB [Suspect]
     Active Substance: PERTUZUMAB
     Dosage: THE PATIENT HAS COMPLETED FOUR CYCLES OF THE PRESCRIBED ANTI-TUMOR THERAPY
  11. PERTUZUMAB [Suspect]
     Active Substance: PERTUZUMAB
     Dosage: THE PATIENT HAS COMPLETED FOUR CYCLES OF THE PRESCRIBED ANTI-TUMOR THERAPY
  12. PERTUZUMAB [Suspect]
     Active Substance: PERTUZUMAB
     Dosage: THE PATIENT HAS COMPLETED FOUR CYCLES OF THE PRESCRIBED ANTI-TUMOR THERAPY
  13. DOCETAXEL [Suspect]
     Active Substance: DOCETAXEL\DOCETAXEL ANHYDROUS
     Indication: Breast cancer
  14. BISOPROLOL [Concomitant]
     Active Substance: BISOPROLOL\BISOPROLOL FUMARATE
     Indication: Cardiovascular event prophylaxis
     Dosage: 2.5 MG/DAY
  15. RAMIPRIL [Concomitant]
     Active Substance: RAMIPRIL
     Indication: Cardiovascular event prophylaxis
     Dosage: 2.5 MG/DAY
  16. ROSUVASTATIN [Concomitant]
     Active Substance: ROSUVASTATIN\ROSUVASTATIN CALCIUM
     Indication: Cardiovascular event prophylaxis
     Dosage: 20 MG
  17. LETROZOLE [Concomitant]
     Active Substance: LETROZOLE
     Indication: Hormone therapy
     Dosage: 2.5 MG

REACTIONS (2)
  - Cardiotoxicity [Recovered/Resolved]
  - Cardiac failure [Recovered/Resolved]
